APPROVED DRUG PRODUCT: CORPHED
Active Ingredient: PSEUDOEPHEDRINE HYDROCHLORIDE; TRIPROLIDINE HYDROCHLORIDE
Strength: 60MG;2.5MG
Dosage Form/Route: TABLET;ORAL
Application: A088602 | Product #001
Applicant: CHARTWELL RX SCIENCES LLC
Approved: Apr 11, 1985 | RLD: No | RS: No | Type: DISCN